FAERS Safety Report 8816442 (Version 1)
Quarter: 2012Q4

REPORT INFORMATION
  Report Type: Spontaneous
  Country: JP (occurrence: None)
  Receive Date: 20120927
  Receipt Date: 20120927
  Transmission Date: 20130627
  Serious: No
  Sender: FDA-Public Use
  Company Number: FK201202796

PATIENT
  Age: 67 Year
  Sex: Female

DRUGS (2)
  1. HEPARIN [Suspect]
     Indication: ANTICOAGULANT THERAPY
     Dosage: 5000 IU, Intravenous (not otherwise specified)
     Route: 042
  2. PROTAMINE SULFATE [Suspect]
     Indication: HEPARIN NEUTRALISATION THERAPY

REACTIONS (2)
  - Cerebral haematoma [None]
  - Hydrocephalus [None]
